FAERS Safety Report 19970883 (Version 2)
Quarter: 2021Q4

REPORT INFORMATION
  Report Type: Spontaneous
  Country: US (occurrence: US)
  Receive Date: 20211020
  Receipt Date: 20211125
  Transmission Date: 20220303
  Serious: No
  Sender: FDA-Public Use
  Company Number: US-SANOFI-00814240

PATIENT
  Sex: Male

DRUGS (2)
  1. AMBIEN [Suspect]
     Active Substance: ZOLPIDEM TARTRATE
     Indication: Sleep disorder
     Dosage: TAKES AN ENTIRE 10MG TABLET AT MIDNIGHT HE WILL WAKE UP BETWEEN 0430 AND 0500. PT STATE HE HAS BROKE
     Route: 065
  2. AMBIEN [Suspect]
     Active Substance: ZOLPIDEM TARTRATE
     Dosage: GOT THE AMBIEN CR 6MG IN ERROR BECAUSE HE WAS CONFUSED, TOOK THE AMBIEN 6MG CR AND IT WORKED FOR ONL
     Route: 065

REACTIONS (3)
  - Wrong technique in product usage process [Unknown]
  - Product use issue [Unknown]
  - Therapeutic response decreased [Unknown]
